FAERS Safety Report 21978730 (Version 1)
Quarter: 2023Q1

REPORT INFORMATION
  Report Type: Spontaneous
  Country: US (occurrence: None)
  Receive Date: 20230208
  Receipt Date: 20230208
  Transmission Date: 20230418
  Serious: No
  Sender: FDA-Public Use
  Company Number: None

PATIENT
  Age: 79 Year
  Sex: Male
  Weight: 83.01 kg

DRUGS (7)
  1. ERIVEDGE [Suspect]
     Active Substance: VISMODEGIB
     Indication: Basal cell carcinoma
     Dosage: FREQUENCY : DAILY;?
     Route: 048
  2. AMLODIPINE [Concomitant]
  3. ASPIRIN [Concomitant]
  4. ELIQUIS [Concomitant]
  5. LISINOPRIL [Concomitant]
  6. LOPRESSOR [Concomitant]
  7. METOPROLOL TARTRATE [Concomitant]

REACTIONS (2)
  - Basal cell carcinoma [None]
  - Malignant neoplasm progression [None]
